FAERS Safety Report 12355272 (Version 2)
Quarter: 2016Q2

REPORT INFORMATION
  Report Type: Report from Study
  Country: CA (occurrence: CA)
  Receive Date: 20160511
  Receipt Date: 20160616
  Transmission Date: 20160815
  Serious: Yes (Other)
  Sender: FDA-Public Use
  Company Number: PHHY2013CA039946

PATIENT
  Age: 47 Year
  Sex: Male

DRUGS (2)
  1. SANDOSTATIN LAR DEPOT [Suspect]
     Active Substance: OCTREOTIDE ACETATE
     Indication: ACROMEGALY
     Dosage: 20 MG, QMO (EVERY 4 WEEKS)
     Route: 030
     Dates: start: 20120830
  2. SANDOSTATIN LAR DEPOT [Suspect]
     Active Substance: OCTREOTIDE ACETATE
     Dosage: 30 MG, QMO (EVERY 4 WEEKS)
     Route: 030

REACTIONS (23)
  - Blood pressure systolic increased [Unknown]
  - Abdominal discomfort [Unknown]
  - Drug ineffective [Unknown]
  - Faeces soft [Unknown]
  - Pain [Unknown]
  - Product quality issue [Unknown]
  - Needle issue [Unknown]
  - Blood pressure increased [Unknown]
  - Blood pressure diastolic decreased [Unknown]
  - Respiratory rate decreased [Unknown]
  - Diarrhoea [Unknown]
  - Headache [Not Recovered/Not Resolved]
  - Respiratory rate increased [Unknown]
  - Cough [Unknown]
  - Asthenia [Unknown]
  - Nasopharyngitis [Recovering/Resolving]
  - Syringe issue [Unknown]
  - Nausea [Unknown]
  - Malaise [Unknown]
  - Vomiting [Unknown]
  - Influenza [Recovering/Resolving]
  - Heart rate irregular [Unknown]
  - Fatigue [Unknown]

NARRATIVE: CASE EVENT DATE: 2015
